FAERS Safety Report 9555348 (Version 2)
Quarter: 2013Q4

REPORT INFORMATION
  Report Type: Spontaneous
  Country: FR (occurrence: FR)
  Receive Date: 20130926
  Receipt Date: 20131015
  Transmission Date: 20140711
  Serious: No
  Sender: FDA-Public Use
  Company Number: FR-JNJFOC-20130912820

PATIENT
  Sex: Female

DRUGS (1)
  1. DUROGESIC [Suspect]
     Indication: PAIN
     Route: 062
     Dates: start: 20130819

REACTIONS (2)
  - Drug dose omission [Unknown]
  - Product packaging issue [Unknown]
